FAERS Safety Report 9428361 (Version 1)
Quarter: 2013Q3

REPORT INFORMATION
  Report Type: Spontaneous
  Country: HU (occurrence: HU)
  Receive Date: 20130730
  Receipt Date: 20130730
  Transmission Date: 20140515
  Serious: Yes (Hospitalization)
  Sender: FDA-Public Use
  Company Number: HU-ABBOTT-13P-076-1124047-00

PATIENT
  Age: 25 Year
  Sex: Male

DRUGS (2)
  1. HUMIRA [Suspect]
     Indication: CROHN^S DISEASE
     Route: 058
     Dates: start: 201208
  2. PENTASA [Concomitant]
     Indication: PRODUCT USED FOR UNKNOWN INDICATION
     Route: 048

REACTIONS (7)
  - Hyperkeratosis [Unknown]
  - Erythema [Unknown]
  - Skin plaque [Unknown]
  - Skin exfoliation [Unknown]
  - Dry skin [Recovered/Resolved]
  - Pain in extremity [Recovered/Resolved]
  - Papule [Unknown]
